FAERS Safety Report 16758932 (Version 1)
Quarter: 2019Q3

REPORT INFORMATION
  Report Type: Spontaneous
  Country: AR (occurrence: AR)
  Receive Date: 20190830
  Receipt Date: 20190830
  Transmission Date: 20191005
  Serious: Yes (Other)
  Sender: FDA-Public Use
  Company Number: AR-GLAXOSMITHKLINE-AR2019155803

PATIENT
  Sex: Male

DRUGS (2)
  1. FLIXOTIDE 125 [Suspect]
     Active Substance: FLUTICASONE PROPIONATE
     Indication: BRONCHOSPASM
  2. FLIXOTIDE 125 [Suspect]
     Active Substance: FLUTICASONE PROPIONATE
     Indication: PROPHYLAXIS
     Dosage: UNK
     Route: 055

REACTIONS (1)
  - Haematochezia [Unknown]
